FAERS Safety Report 8102068-8 (Version None)
Quarter: 2012Q1

REPORT INFORMATION
  Report Type: 
  Country: None (occurrence: None)
  Receive Date: 20120131
  Receipt Date: 20120124
  Transmission Date: 20120608
  Serious: No
  Sender: FDA-Public Use
  Company Number: US-MERCK-1201USA01017

PATIENT
  Age: 73 Year
  Sex: Female

DRUGS (5)
  1. VYTORIN [Suspect]
     Route: 048
     Dates: start: 20111201
  2. MIACALCIN [Concomitant]
     Indication: OSTEOPOROSIS
     Route: 065
  3. ACIPHEX [Concomitant]
     Indication: REFLUX GASTRITIS
     Route: 048
  4. ALREX [Concomitant]
     Route: 065
     Dates: start: 20111223
  5. VYTORIN [Suspect]
     Indication: HYPERCHOLESTEROLAEMIA
     Route: 048
     Dates: start: 20090714, end: 20111220

REACTIONS (2)
  - PALPITATIONS [None]
  - DIZZINESS [None]
